FAERS Safety Report 11008631 (Version 4)
Quarter: 2015Q2

REPORT INFORMATION
  Report Type: Spontaneous
  Country: CN (occurrence: None)
  Receive Date: 20150408
  Receipt Date: 20150603
  Transmission Date: 20150821
  Serious: Yes (Hospitalization, Other)
  Sender: FDA-Public Use
  Company Number: CN-2014VAL000612

PATIENT
  Age: 74 Year
  Sex: Female

DRUGS (7)
  1. MIACALCIC [Suspect]
     Active Substance: CALCITONIN SALMON
     Indication: OSTEOPOROSIS POSTMENOPAUSAL
     Route: 030
     Dates: start: 20150311
  2. ACLASTA (ZOLEDRONIC ACID) [Concomitant]
  3. ROCALTROL [Suspect]
     Active Substance: CALCITRIOL
     Indication: OSTEOPOROSIS POSTMENOPAUSAL
     Route: 048
     Dates: start: 2004
  4. DEXAMETHASONE. [Suspect]
     Active Substance: DEXAMETHASONE
     Indication: DEAFNESS
     Route: 048
  5. FOSAMAX [Suspect]
     Active Substance: ALENDRONATE SODIUM
     Indication: OSTEOPOROSIS
     Route: 048
     Dates: start: 201111
  6. ROCALTROL [Suspect]
     Active Substance: CALCITRIOL
     Route: 048
     Dates: start: 2004
  7. MECOBALAMIN [Concomitant]
     Active Substance: METHYLCOBALAMIN

REACTIONS (31)
  - Spinal compression fracture [None]
  - Arthralgia [None]
  - Musculoskeletal pain [None]
  - Cerumen impaction [None]
  - Constipation [None]
  - Urine output increased [None]
  - Weight decreased [None]
  - Groin pain [None]
  - Cervicobrachial syndrome [None]
  - Optic neuropathy [None]
  - Gallbladder polyp [None]
  - Spinal pain [None]
  - Dehydration [None]
  - Cervical radiculopathy [None]
  - Hip fracture [None]
  - Chromaturia [None]
  - Hypertension [None]
  - Arrhythmia [None]
  - Headache [None]
  - Drug ineffective [None]
  - Thirst [None]
  - Nausea [None]
  - Visual impairment [None]
  - Off label use [None]
  - Cholelithiasis [None]
  - Blood glucose increased [None]
  - Dizziness [None]
  - Decreased appetite [None]
  - Cataract [None]
  - Abdominal pain upper [None]
  - Rash [None]

NARRATIVE: CASE EVENT DATE: 2004
